FAERS Safety Report 22088479 (Version 5)
Quarter: 2023Q4

REPORT INFORMATION
  Report Type: Report from Study
  Country: US (occurrence: US)
  Receive Date: 20230313
  Receipt Date: 20231220
  Transmission Date: 20240110
  Serious: No
  Sender: FDA-Public Use
  Company Number: US-002147023-NVSC2023US054585

PATIENT
  Sex: Female

DRUGS (6)
  1. XIIDRA [Suspect]
     Active Substance: LIFITEGRAST
     Indication: Product used for unknown indication
     Dosage: UNK
     Route: 065
  2. XIIDRA [Suspect]
     Active Substance: LIFITEGRAST
     Dosage: UNK
     Route: 065
  3. XIIDRA [Suspect]
     Active Substance: LIFITEGRAST
     Dosage: UNK
     Route: 065
  4. XIIDRA [Suspect]
     Active Substance: LIFITEGRAST
     Dosage: 5 %, BID
     Route: 065
  5. XIIDRA [Suspect]
     Active Substance: LIFITEGRAST
     Dosage: 5 %, BID
     Route: 065
  6. XIIDRA [Suspect]
     Active Substance: LIFITEGRAST
     Dosage: 5 %, QD
     Route: 031

REACTIONS (6)
  - Expired product administered [Unknown]
  - Ocular hyperaemia [Unknown]
  - Inappropriate schedule of product administration [Unknown]
  - Dry eye [Unknown]
  - Eye irritation [Unknown]
  - Eye pruritus [Unknown]
